FAERS Safety Report 17402658 (Version 1)
Quarter: 2020Q1

REPORT INFORMATION
  Report Type: Spontaneous
  Country: US (occurrence: US)
  Receive Date: 20200210
  Receipt Date: 20200210
  Transmission Date: 20200409
  Serious: Yes (Hospitalization)
  Sender: FDA-Public Use
  Company Number: None

PATIENT
  Age: 20 Year
  Sex: Female
  Weight: 45.9 kg

DRUGS (1)
  1. AIMOVIG [Suspect]
     Active Substance: ERENUMAB-AOOE
     Indication: MIGRAINE
     Dosage: ?          OTHER FREQUENCY:ONCE A MONTH;??
     Route: 058
     Dates: start: 20191030, end: 20200128

REACTIONS (4)
  - Seizure [None]
  - Nausea [None]
  - Migraine [None]
  - Loss of consciousness [None]

NARRATIVE: CASE EVENT DATE: 20200128
